FAERS Safety Report 11820213 (Version 1)
Quarter: 2015Q4

REPORT INFORMATION
  Report Type: Spontaneous
  Country: PL (occurrence: PL)
  Receive Date: 20151210
  Receipt Date: 20151210
  Transmission Date: 20160305
  Serious: Yes (Hospitalization)
  Sender: FDA-Public Use
  Company Number: PL-009507513-1512POL004559

PATIENT
  Age: 4 Year
  Sex: Female

DRUGS (1)
  1. MOMETASONE FUROATE. [Suspect]
     Active Substance: MOMETASONE FUROATE
     Indication: DERMATITIS ATOPIC
     Dosage: 2-3 TIMES A WEEK  (30 G/MONTH)
     Route: 061

REACTIONS (2)
  - Intentional product misuse [Recovered/Resolved]
  - Cushing^s syndrome [Recovered/Resolved]
